FAERS Safety Report 6377214-7 (Version None)
Quarter: 2009Q3

REPORT INFORMATION
  Report Type: 
  Country: None (occurrence: None)
  Receive Date: 20090925
  Receipt Date: 20090921
  Transmission Date: 20100115
  Serious: Yes (Other)
  Sender: FDA-Public Use
  Company Number: A0808274A

PATIENT
  Age: 55 Year
  Sex: Male

DRUGS (10)
  1. ADVAIR DISKUS 100/50 [Suspect]
     Indication: ASTHMA
     Route: 055
     Dates: start: 20070101
  2. ADDERALL 10 [Concomitant]
  3. WELLBUTRIN SR [Concomitant]
  4. FLOMAX [Concomitant]
  5. SINGULAIR [Concomitant]
  6. CEREFOLIN WITH NAC [Concomitant]
  7. SERTRALINE HCL [Concomitant]
  8. ARICEPT [Concomitant]
  9. KLONOPIN [Concomitant]
  10. ATROVENT [Concomitant]

REACTIONS (4)
  - ASTHMA [None]
  - CHEST DISCOMFORT [None]
  - COUGH [None]
  - PRODUCT QUALITY ISSUE [None]
